FAERS Safety Report 21349830 (Version 1)
Quarter: 2022Q3

REPORT INFORMATION
  Report Type: Spontaneous
  Country: US (occurrence: None)
  Receive Date: 20220916
  Receipt Date: 20220916
  Transmission Date: 20221027
  Serious: No
  Sender: FDA-Public Use
  Company Number: None

PATIENT
  Sex: Male
  Weight: 59.87 kg

DRUGS (15)
  1. WELIREG [Suspect]
     Active Substance: BELZUTIFAN
     Indication: Renal cancer
     Dosage: FREQUENCY : DAILY;?
     Route: 048
  2. ASCORBIC ACID [Concomitant]
     Active Substance: ASCORBIC ACID
  3. ATORVASTATIN [Concomitant]
     Active Substance: ATORVASTATIN
  4. BETA CAROTENE [Concomitant]
     Active Substance: BETA CAROTENE
  5. Calcium 600 +D [Concomitant]
  6. GELATIN [Concomitant]
     Active Substance: GELATIN
  7. GLYCERIN [Concomitant]
     Active Substance: GLYCERIN
  8. Multivitamins/Fluoride (with ADE) [Concomitant]
  9. SOYBEAN [Concomitant]
     Active Substance: SOYBEAN
  10. TAMSULOSIN [Concomitant]
     Active Substance: TAMSULOSIN
  11. TYLENOL 8HR [Concomitant]
     Active Substance: ACETAMINOPHEN
  12. VALSARTAN [Concomitant]
     Active Substance: VALSARTAN
  13. Vitamin B Complex Combinations [Concomitant]
  14. VITAMIN D2 [Concomitant]
     Active Substance: ERGOCALCIFEROL
  15. ZINC OXIDE [Concomitant]
     Active Substance: ZINC OXIDE

REACTIONS (1)
  - Hypoxia [None]
